FAERS Safety Report 21171320 (Version 2)
Quarter: 2022Q3

REPORT INFORMATION
  Report Type: Report from Study
  Country: DE (occurrence: DE)
  Receive Date: 20220804
  Receipt Date: 20220822
  Transmission Date: 20221027
  Serious: Yes (Hospitalization, Other)
  Sender: FDA-Public Use
  Company Number: DE-MYLANLABS-2022M1080060

PATIENT
  Sex: Female

DRUGS (3)
  1. UNSPECIFIED INGREDIENT [Suspect]
     Active Substance: UNSPECIFIED INGREDIENT
     Dosage: NO DOSE GIVEN
  2. METHOTREXATE SODIUM [Suspect]
     Active Substance: METHOTREXATE SODIUM
     Indication: Rheumatoid arthritis
     Dosage: 15 MG
  3. LEFLUNOMIDE [Suspect]
     Active Substance: LEFLUNOMIDE
     Indication: Rheumatoid arthritis
     Dosage: 20 MG

REACTIONS (4)
  - COVID-19 [Recovered/Resolved]
  - Bicytopenia [Not Recovered/Not Resolved]
  - Cholestasis [Not Recovered/Not Resolved]
  - Gamma-glutamyltransferase abnormal [Not Recovered/Not Resolved]

NARRATIVE: CASE EVENT DATE: 20210506
